FAERS Safety Report 10164614 (Version 1)
Quarter: 2014Q2

REPORT INFORMATION
  Report Type: Spontaneous
  Country: US (occurrence: US)
  Receive Date: 20140510
  Receipt Date: 20140510
  Transmission Date: 20141212
  Serious: No
  Sender: FDA-Public Use
  Company Number: US-BRISTOL-MYERS SQUIBB COMPANY-20117099

PATIENT
  Age: 71 Year
  Sex: Female

DRUGS (7)
  1. BYDUREON [Suspect]
     Indication: TYPE 2 DIABETES MELLITUS
     Route: 058
     Dates: start: 20131215
  2. LANTUS [Concomitant]
     Dosage: 20-30 UNITS QHS
  3. SIMVASTATIN [Concomitant]
  4. VITAMIN B12 [Concomitant]
  5. PROPRANOLOL [Concomitant]
  6. PRIMIDONE [Concomitant]
     Dosage: 2 TABLETS BID
  7. TRAMADOL [Concomitant]
     Indication: SCIATICA
     Dosage: 1-2 TABLETS QID PRN

REACTIONS (3)
  - Injection site swelling [Unknown]
  - Injection site bruising [Unknown]
  - Injection site pruritus [Recovering/Resolving]
